FAERS Safety Report 4400924-5 (Version None)
Quarter: 2004Q3

REPORT INFORMATION
  Report Type: 
  Country: None (occurrence: None)
  Receive Date: 20040907
  Receipt Date: 20030812
  Transmission Date: 20050211
  Serious: No
  Sender: FDA-Public Use
  Company Number: US-BRISTOL-MYERS SQUIBB COMPANY-12353058

PATIENT
  Age: 37 Year
  Sex: Female
  Weight: 151 kg

DRUGS (8)
  1. COUMADIN [Suspect]
     Indication: DEEP VEIN THROMBOSIS
     Route: 048
     Dates: start: 20030416
  2. LEXAPRO [Concomitant]
  3. PROPRANOLOL [Concomitant]
  4. AVANDIA [Concomitant]
  5. GLUCOPHAGE [Concomitant]
  6. HYDROCHLOROTHIAZIDE [Concomitant]
  7. ATACAND [Concomitant]
  8. CLONAZEPAM [Concomitant]

REACTIONS (2)
  - PRURITUS [None]
  - SUNBURN [None]
